FAERS Safety Report 14320672 (Version 2)
Quarter: 2017Q4

REPORT INFORMATION
  Report Type: Report from Study
  Country: US (occurrence: US)
  Receive Date: 20171223
  Receipt Date: 20171227
  Transmission Date: 20180321
  Serious: Yes (Hospitalization, Other)
  Sender: FDA-Public Use
  Company Number: US-ROCHE-2043986

PATIENT

DRUGS (10)
  1. CYCLOPHOSPHAMIDE. [Suspect]
     Active Substance: CYCLOPHOSPHAMIDE
     Indication: LYMPHOMA
     Route: 065
  2. PREDNISONE. [Suspect]
     Active Substance: PREDNISONE
     Indication: LYMPHOMA
     Route: 065
  3. METHOTREXATE. [Suspect]
     Active Substance: METHOTREXATE
     Indication: LYMPHOMA
     Route: 065
  4. FILGRASTIM [Concomitant]
     Active Substance: FILGRASTIM
  5. SULFAMETHOXAZOLE/TRIMETHOPRIM [Concomitant]
     Active Substance: SULFAMETHOXAZOLE\TRIMETHOPRIM
     Indication: PROPHYLAXIS
     Route: 065
  6. DOXORUBICIN [Suspect]
     Active Substance: DOXORUBICIN
     Indication: LYMPHOMA
     Route: 065
  7. RITUXIMAB. [Suspect]
     Active Substance: RITUXIMAB
     Indication: LYMPHOMA
     Route: 065
  8. PEGFILGRASTIM [Concomitant]
     Active Substance: PEGFILGRASTIM
  9. VINCRISTINE [Suspect]
     Active Substance: VINCRISTINE
     Indication: LYMPHOMA
     Route: 065
  10. ETOPOSIDE. [Suspect]
     Active Substance: ETOPOSIDE
     Indication: LYMPHOMA
     Route: 065

REACTIONS (8)
  - Neutropenia [Unknown]
  - Anaemia [Unknown]
  - Blood bilirubin increased [Recovered/Resolved]
  - Infection [Unknown]
  - Thrombocytopenia [Unknown]
  - Transaminases increased [Recovered/Resolved]
  - Hepatotoxicity [Recovered/Resolved]
  - Nephropathy toxic [Recovered/Resolved]
